FAERS Safety Report 7231378-1 (Version None)
Quarter: 2011Q1

REPORT INFORMATION
  Report Type: 
  Country: None (occurrence: None)
  Receive Date: 20110118
  Receipt Date: 20110111
  Transmission Date: 20110831
  Serious: Yes (Other)
  Sender: FDA-Public Use
  Company Number: FR-MERCK-1101FRA00053

PATIENT
  Sex: Male

DRUGS (2)
  1. SINEMET [Suspect]
     Indication: PARKINSON'S DISEASE
     Route: 048
     Dates: start: 20001101, end: 20060201
  2. PERGOLIDE MESYLATE [Suspect]
     Indication: PARKINSON'S DISEASE
     Route: 048
     Dates: start: 20001101, end: 20060201

REACTIONS (5)
  - HYPERSEXUALITY [None]
  - PATHOLOGICAL GAMBLING [None]
  - PSYCHOMOTOR HYPERACTIVITY [None]
  - ABNORMAL BEHAVIOUR [None]
  - DELIRIUM [None]
